FAERS Safety Report 9127479 (Version 1)
Quarter: 2013Q1

REPORT INFORMATION
  Report Type: Spontaneous
  Country: SE (occurrence: SE)
  Receive Date: 20130228
  Receipt Date: 20130228
  Transmission Date: 20140127
  Serious: Yes (Other)
  Sender: FDA-Public Use
  Company Number: SE-PFIZER INC-2013070166

PATIENT
  Age: 87 Year
  Sex: Female

DRUGS (1)
  1. DOLCONTIN [Suspect]
     Indication: CARDIAC FAILURE
     Dosage: 5 MG, 3X/DAY
     Route: 048
     Dates: start: 20121218, end: 20121219

REACTIONS (8)
  - Depressed level of consciousness [Recovered/Resolved]
  - Cardiac failure [Recovered/Resolved]
  - Pneumonia [Recovered/Resolved]
  - Dyspnoea [Recovered/Resolved]
  - Nausea [Recovered/Resolved]
  - Vomiting [Recovered/Resolved]
  - Cold sweat [Recovered/Resolved]
  - Off label use [Unknown]
